FAERS Safety Report 19278478 (Version 4)
Quarter: 2022Q1

REPORT INFORMATION
  Report Type: Spontaneous
  Country: JP (occurrence: JP)
  Receive Date: 20210520
  Receipt Date: 20220322
  Transmission Date: 20220423
  Serious: Yes (Death, Other)
  Sender: FDA-Public Use
  Company Number: JP-AMGEN-JPNSP2021054507

PATIENT
  Age: 48 Year
  Sex: Male
  Weight: 69 kg

DRUGS (16)
  1. BLINCYTO [Suspect]
     Active Substance: BLINATUMOMAB
     Indication: B precursor type acute leukaemia
     Dosage: 9 MICROGRAM, QD
     Route: 041
     Dates: start: 20210407, end: 20210413
  2. BLINCYTO [Suspect]
     Active Substance: BLINATUMOMAB
     Dosage: 28 MICROGRAM, QD
     Route: 041
     Dates: start: 20210414, end: 20210425
  3. BLINCYTO [Suspect]
     Active Substance: BLINATUMOMAB
     Dosage: 9 MICROGRAM, QD
     Route: 041
     Dates: start: 20210429, end: 20210504
  4. FLUCONAZOLE [Concomitant]
     Active Substance: FLUCONAZOLE
     Indication: Systemic mycosis
     Dosage: 200 MILLIGRAM, QD
     Dates: start: 20210115
  5. SULFAMETHOXAZOLE\TRIMETHOPRIM [Concomitant]
     Active Substance: SULFAMETHOXAZOLE\TRIMETHOPRIM
     Indication: Cystitis
     Dosage: UNK UNK, QD
     Dates: start: 20210115
  6. NEXIUM I.V. [Concomitant]
     Active Substance: ESOMEPRAZOLE SODIUM
     Indication: Gastrooesophageal reflux disease
     Dosage: 20 MILLIGRAM, QD
     Dates: start: 20210115
  7. CIPROFLOXACIN [Concomitant]
     Active Substance: CIPROFLOXACIN
     Indication: Tonsillitis
     Dosage: 200 MILLIGRAM, TID
     Dates: start: 20210115
  8. FEBUXOSTAT [Concomitant]
     Active Substance: FEBUXOSTAT
     Indication: Hyperuricaemia
     Dosage: 60 MILLIGRAM, QD
     Dates: start: 20210120
  9. LOXOPROFEN [Concomitant]
     Active Substance: LOXOPROFEN
     Indication: Back pain
     Dosage: 60 MILLIGRAM, AS NECESSARY
     Dates: start: 20210115
  10. CALONAL [Concomitant]
     Active Substance: ACETAMINOPHEN
     Indication: Pyrexia
     Dosage: 600 MILLIGRAM, AS NECESSARY
     Dates: start: 20210115
  11. DEXAMETHASONE SODIUM PHOSPHATE [Concomitant]
     Active Substance: DEXAMETHASONE SODIUM PHOSPHATE
     Indication: Prophylaxis
     Dosage: 16.5 MILLIGRAM, QD
     Dates: start: 20210407, end: 20210407
  12. DEXAMETHASONE SODIUM PHOSPHATE [Concomitant]
     Active Substance: DEXAMETHASONE SODIUM PHOSPHATE
     Dosage: 20 MILLIGRAM, QD
     Dates: start: 20210419, end: 20210421
  13. DEXAMETHASONE SODIUM PHOSPHATE [Concomitant]
     Active Substance: DEXAMETHASONE SODIUM PHOSPHATE
     Dosage: 16 MILLIGRAM, QD
     Dates: start: 20210422
  14. DEXAMETHASONE SODIUM PHOSPHATE [Concomitant]
     Active Substance: DEXAMETHASONE SODIUM PHOSPHATE
     Dosage: 12 MILLIGRAM, QD
     Dates: start: 20210423
  15. DEXAMETHASONE SODIUM PHOSPHATE [Concomitant]
     Active Substance: DEXAMETHASONE SODIUM PHOSPHATE
     Dosage: 8 MILLIGRAM, QD
     Dates: start: 20210424
  16. OXYCODONE [Concomitant]
     Active Substance: OXYCODONE
     Dosage: 20 MILLIGRAM, QD
     Route: 042
     Dates: start: 20210418

REACTIONS (6)
  - Acute lymphocytic leukaemia recurrent [Fatal]
  - Vomiting [Not Recovered/Not Resolved]
  - Headache [Not Recovered/Not Resolved]
  - Platelet count decreased [Recovered/Resolved]
  - Drug resistance [Unknown]
  - Blood lactate dehydrogenase increased [Recovering/Resolving]

NARRATIVE: CASE EVENT DATE: 20210101
